FAERS Safety Report 7290840-6 (Version None)
Quarter: 2011Q1

REPORT INFORMATION
  Report Type: 
  Country: None (occurrence: None)
  Receive Date: 20110202
  Receipt Date: 20110124
  Transmission Date: 20110831
  Serious: Yes (Death, Hospitalization)
  Sender: FDA-Public Use
  Company Number: 2010120025

PATIENT
  Age: 68 Year
  Sex: Male

DRUGS (9)
  1. WARFARIN POTASSIUM (WARFARIN POTASSIUM) [Concomitant]
  2. ALLOPURINOL [Suspect]
     Indication: HYPERURICAEMIA
     Dosage: ORAL
     Route: 048
     Dates: start: 20070101
  3. MUCOSTA (REBAMIPIDE) [Concomitant]
  4. LUPRAC (TORASEMIDE) [Suspect]
     Indication: CARDIAC FAILURE
     Dosage: ORAL
     Route: 048
     Dates: start: 20070101
  5. ARTIST (CARVEDILOL) [Suspect]
     Indication: CARDIAC FAILURE
     Dosage: ORAL
     Route: 048
     Dates: start: 20070101
  6. PREDNISOLONE [Suspect]
     Indication: DRUG ERUPTION
     Dosage: 60 MG (60 MG,1 IN 1 D) ; 30 MG (30 MG,1 IN 1 D)
     Dates: start: 20071201
  7. LASIX [Suspect]
     Dosage: ORAL
     Route: 048
     Dates: start: 20070101
  8. DIOVAN [Concomitant]
  9. HALFDIGOXIN KY (DIGOXIN) [Concomitant]

REACTIONS (24)
  - DRUG ERUPTION [None]
  - BLOOD BILIRUBIN INCREASED [None]
  - CARDIOMEGALY [None]
  - RED BLOOD CELL COUNT DECREASED [None]
  - BLOOD ALKALINE PHOSPHATASE INCREASED [None]
  - PYREXIA [None]
  - GENERALISED OEDEMA [None]
  - RASH PUSTULAR [None]
  - EOSINOPHIL PERCENTAGE INCREASED [None]
  - BLOOD LACTATE DEHYDROGENASE INCREASED [None]
  - PULMONARY CONGESTION [None]
  - PNEUMONITIS [None]
  - HAEMORRHAGE [None]
  - CARDIAC FAILURE [None]
  - ERYTHEMA [None]
  - BLOOD UREA INCREASED [None]
  - RASH GENERALISED [None]
  - DERMATITIS EXFOLIATIVE [None]
  - SCAB [None]
  - NEUTROPHIL PERCENTAGE DECREASED [None]
  - HAEMOGLOBIN DECREASED [None]
  - BLOOD CREATININE INCREASED [None]
  - STRONGYLOIDIASIS [None]
  - LYMPHOCYTE PERCENTAGE DECREASED [None]
